FAERS Safety Report 13112852 (Version 2)
Quarter: 2017Q1

REPORT INFORMATION
  Report Type: Report from Study
  Country: DE (occurrence: DE)
  Receive Date: 20170113
  Receipt Date: 20170127
  Transmission Date: 20170428
  Serious: Yes (Death, Hospitalization, Other)
  Sender: FDA-Public Use
  Company Number: PHHY2017DE003623

PATIENT
  Sex: Female
  Weight: 65 kg

DRUGS (5)
  1. VOTRIENT [Suspect]
     Active Substance: PAZOPANIB HYDROCHLORIDE
     Dosage: 800 MG, QD
     Route: 048
     Dates: start: 20160721, end: 20160912
  2. OPDIVO [Suspect]
     Active Substance: NIVOLUMAB
     Indication: METASTATIC RENAL CELL CARCINOMA
     Dosage: 3 MG/KG, DOSE PER INFUSION
     Route: 042
     Dates: start: 20160913, end: 20160913
  3. VOTRIENT [Suspect]
     Active Substance: PAZOPANIB HYDROCHLORIDE
     Indication: METASTATIC RENAL CELL CARCINOMA
     Dosage: 400 MG, QD
     Route: 048
     Dates: start: 20160118, end: 20160306
  4. VOTRIENT [Suspect]
     Active Substance: PAZOPANIB HYDROCHLORIDE
     Dosage: 800 MG, QD
     Route: 048
     Dates: start: 20160525, end: 20160626
  5. VOTRIENT [Suspect]
     Active Substance: PAZOPANIB HYDROCHLORIDE
     Dosage: 800 MG, QD
     Route: 048
     Dates: start: 20160420, end: 20160524

REACTIONS (15)
  - Headache [Recovering/Resolving]
  - Hallucination, visual [Recovering/Resolving]
  - Lymphocyte count increased [Unknown]
  - Blood lactate dehydrogenase decreased [Unknown]
  - Neutrophil count increased [Unknown]
  - Malignant neoplasm progression [Fatal]
  - Haemoglobin decreased [Unknown]
  - Brain oedema [Unknown]
  - Intracranial pressure increased [Recovering/Resolving]
  - Vomiting [Not Recovered/Not Resolved]
  - Metastases to bone [Unknown]
  - Blood triglycerides increased [Unknown]
  - Sinus disorder [Unknown]
  - Lymphocyte count decreased [Unknown]
  - Nausea [Not Recovered/Not Resolved]

NARRATIVE: CASE EVENT DATE: 20160301
